FAERS Safety Report 8853943 (Version 3)
Quarter: 2014Q1

REPORT INFORMATION
  Report Type: Spontaneous
  Country: US (occurrence: None)
  Receive Date: 20120426
  Receipt Date: 20130107
  Transmission Date: 20141002
  Serious: No
  Sender: FDA-Public Use
  Company Number: PHEH2011US012987

PATIENT
  Age: 47 Year
  Sex: Male

DRUGS (5)
  1. GILENYA [Suspect]
     Indication: MULTIPLE SCLEROSIS
     Route: 048
     Dates: start: 20110208
  2. RESTASIS (CICLOSPORIN) [Concomitant]
  3. COZAAR (LOSARTAN POTASSIUM) [Concomitant]
  4. PATADAY (OLOPATADINE HYDROCHLORIDE) [Concomitant]
  5. BACLOFEN (BACLOFEN) [Concomitant]

REACTIONS (3)
  - Fall [None]
  - Acne [None]
  - Hepatic enzyme increased [None]
